FAERS Safety Report 5765788-6 (Version None)
Quarter: 2008Q2

REPORT INFORMATION
  Report Type: 
  Country: None (occurrence: None)
  Receive Date: 20080605
  Receipt Date: 20080331
  Transmission Date: 20081010
  Serious: Yes (Other)
  Sender: FDA-Public Use
  Company Number: SPV1-2008-00734

PATIENT
  Age: 8 Year
  Sex: Female

DRUGS (3)
  1. DAYTRANA [Suspect]
     Dosage: 30 MG, 1X/DAY:QD, TRANSDERMAL ; 20 MG, 1X/DAY:QD, TRANSDERMAL
     Route: 062
     Dates: start: 20070601, end: 20071001
  2. DAYTRANA [Suspect]
     Dosage: 30 MG, 1X/DAY:QD, TRANSDERMAL ; 20 MG, 1X/DAY:QD, TRANSDERMAL
     Route: 062
     Dates: start: 20071001
  3. CLONIDINE [Concomitant]

REACTIONS (2)
  - CONVULSION [None]
  - PHARMACEUTICAL PRODUCT COMPLAINT [None]
